FAERS Safety Report 4587608-8 (Version None)
Quarter: 2005Q1

REPORT INFORMATION
  Report Type: 
  Country: None (occurrence: None)
  Receive Date: 20050218
  Receipt Date: 20040818
  Transmission Date: 20050727
  Serious: Yes (Death, Hospitalization, Other)
  Sender: FDA-Public Use
  Company Number: JP-MERCK-0408USA01868

PATIENT
  Age: 52 Year
  Sex: Male

DRUGS (7)
  1. PEPCID [Suspect]
     Indication: GASTRITIS
     Route: 048
     Dates: start: 20040310, end: 20040817
  2. SELBEX [Concomitant]
     Indication: GASTRITIS
     Route: 048
  3. SELBEX [Concomitant]
     Route: 048
     Dates: start: 20040610, end: 20040817
  4. PREDONINE [Concomitant]
     Indication: DEMYELINATING POLYNEUROPATHY
     Route: 048
  5. PREDONINE [Concomitant]
     Route: 048
     Dates: start: 20040616, end: 20040622
  6. UFT [Suspect]
     Indication: COLON CANCER
     Route: 048
     Dates: start: 20040721, end: 20040817
  7. UFT [Suspect]
     Route: 048
     Dates: start: 20040401, end: 20040510

REACTIONS (7)
  - COLONIC OBSTRUCTION [None]
  - DISEASE RECURRENCE [None]
  - DISSEMINATED INTRAVASCULAR COAGULATION [None]
  - GASTRITIS [None]
  - GASTROINTESTINAL HAEMORRHAGE [None]
  - PANCYTOPENIA [None]
  - SEPSIS [None]
